FAERS Safety Report 6329226-7 (Version None)
Quarter: 2009Q3

REPORT INFORMATION
  Report Type: 
  Country: None (occurrence: None)
  Receive Date: 20090826
  Receipt Date: 20090825
  Transmission Date: 20100115
  Serious: Yes (Other)
  Sender: FDA-Public Use
  Company Number: US-PFIZER INC-2009220300

PATIENT

DRUGS (2)
  1. GEODON [Suspect]
  2. ZYPREXA [Concomitant]

REACTIONS (2)
  - DYSTONIA [None]
  - NEUROLOGICAL SYMPTOM [None]
